FAERS Safety Report 21213654 (Version 1)
Quarter: 2022Q3

REPORT INFORMATION
  Report Type: Spontaneous
  Country: US (occurrence: US)
  Receive Date: 20220816
  Receipt Date: 20220816
  Transmission Date: 20221027
  Serious: No
  Sender: FDA-Public Use
  Company Number: US-009507513-2208USA000423

PATIENT
  Age: 33 Year
  Sex: Male

DRUGS (2)
  1. ZINPLAVA [Suspect]
     Active Substance: BEZLOTOXUMAB
     Indication: Clostridium difficile infection
     Dosage: UNK
     Dates: start: 20220728
  2. DIFICID [Concomitant]
     Active Substance: FIDAXOMICIN
     Dosage: UNK
     Route: 048

REACTIONS (1)
  - Chest pain [Not Recovered/Not Resolved]

NARRATIVE: CASE EVENT DATE: 20220728
